FAERS Safety Report 4698309-X (Version None)
Quarter: 2005Q2

REPORT INFORMATION
  Report Type: 
  Country: None (occurrence: None)
  Receive Date: 20050621
  Receipt Date: 20050608
  Transmission Date: 20051028
  Serious: Yes (Hospitalization)
  Sender: FDA-Public Use
  Company Number: 2005085319

PATIENT
  Age: 73 Year
  Sex: Male

DRUGS (3)
  1. LIPITOR [Suspect]
     Indication: HYPERCHOLESTEROLAEMIA
     Dosage: 20 MG, ORAL
     Route: 048
  2. INDAPAMIDE [Concomitant]
  3. ENALAPRIL MALEATE [Concomitant]

REACTIONS (10)
  - CEREBRAL ISCHAEMIA [None]
  - ENDOCARDITIS BACTERIAL [None]
  - FATIGUE [None]
  - GENERAL PHYSICAL HEALTH DETERIORATION [None]
  - MITRAL VALVE DISEASE [None]
  - PYREXIA [None]
  - RASH GENERALISED [None]
  - RENAL FAILURE [None]
  - SPEECH DISORDER [None]
  - STREPTOCOCCAL INFECTION [None]
